FAERS Safety Report 7415388-7 (Version None)
Quarter: 2011Q2

REPORT INFORMATION
  Report Type: 
  Country: None (occurrence: None)
  Receive Date: 20110414
  Receipt Date: 20110408
  Transmission Date: 20111010
  Serious: Yes (Hospitalization)
  Sender: FDA-Public Use
  Company Number: B0711782A

PATIENT
  Sex: Female

DRUGS (11)
  1. PHENYTOIN [Concomitant]
     Route: 065
  2. SINEMET [Concomitant]
     Indication: DEMENTIA
     Dosage: 25MG THREE TIMES PER DAY
     Route: 048
  3. SERESTA [Concomitant]
     Indication: AGGRESSION
     Route: 048
     Dates: start: 20101101
  4. PRODILANTIN [Suspect]
     Indication: STATUS EPILEPTICUS
     Route: 042
     Dates: start: 20101125, end: 20110125
  5. CLAMOXYL [Concomitant]
     Route: 065
     Dates: end: 20110110
  6. LAMICTAL [Suspect]
     Indication: EPILEPSY
     Dosage: 25MG PER DAY
     Route: 048
     Dates: start: 20110104, end: 20110110
  7. DEPAKOTE [Suspect]
     Indication: BIPOLAR DISORDER
     Dosage: 500MG PER DAY
     Route: 048
     Dates: start: 20101101, end: 20101207
  8. EXELON [Concomitant]
     Indication: DEMENTIA
     Dosage: 4.6MG PER DAY
     Route: 062
  9. TEGRETOL [Suspect]
     Indication: EPILEPSY
     Route: 048
     Dates: start: 20101128, end: 20110125
  10. INIPOMP [Concomitant]
     Dosage: 40MG PER DAY
     Route: 048
  11. LEVOTHYROX [Concomitant]
     Dosage: 50MCG PER DAY
     Route: 048

REACTIONS (10)
  - TOXIC SKIN ERUPTION [None]
  - RASH PAPULAR [None]
  - PYREXIA [None]
  - RENAL FAILURE [None]
  - BLOOD ALKALINE PHOSPHATASE INCREASED [None]
  - CHOLESTASIS [None]
  - EOSINOPHILIA [None]
  - DRUG RASH WITH EOSINOPHILIA AND SYSTEMIC SYMPTOMS [None]
  - GAMMA-GLUTAMYLTRANSFERASE INCREASED [None]
  - INFLAMMATION [None]
